FAERS Safety Report 15597544 (Version 1)
Quarter: 2018Q4

REPORT INFORMATION
  Report Type: Report from Study
  Country: US (occurrence: US)
  Receive Date: 20181108
  Receipt Date: 20181108
  Transmission Date: 20190205
  Serious: Yes (Death)
  Sender: FDA-Public Use
  Company Number: US-TEVA-2018-US-972701

PATIENT
  Age: 44 Year
  Sex: Male
  Weight: 109 kg

DRUGS (3)
  1. NORDIAZEPAM [Suspect]
     Active Substance: NORDAZEPAM
     Route: 065
  2. METHADONE [Suspect]
     Active Substance: METHADONE HYDROCHLORIDE
     Route: 065
  3. CHLORDIAZEPOXIDE. [Suspect]
     Active Substance: CHLORDIAZEPOXIDE
     Route: 065

REACTIONS (1)
  - Accidental overdose [Fatal]
